FAERS Safety Report 7524039-2 (Version None)
Quarter: 2011Q2

REPORT INFORMATION
  Report Type: 
  Country: None (occurrence: None)
  Receive Date: 20110605
  Receipt Date: 20110520
  Transmission Date: 20111010
  Serious: No
  Sender: FDA-Public Use
  Company Number: US-B.I. PHARMACEUTICALS,INC./RIDGEFIELD-2011-BP-13655BP

PATIENT
  Age: 69 Year
  Sex: Female

DRUGS (12)
  1. KLOR-CON [Concomitant]
     Dosage: 20 MEQ
  2. LIPITOR [Concomitant]
  3. GABAPENTIN [Concomitant]
     Dosage: 100 MG
  4. CO Q10 [Concomitant]
  5. OMEPRAZOLE [Concomitant]
  6. PRADAXA [Suspect]
     Indication: ATRIAL FIBRILLATION
     Dosage: 300 MG
     Route: 048
     Dates: start: 20110301
  7. SPIRONOLACTONE [Concomitant]
  8. BETHANECHOL [Concomitant]
  9. PROCARDIA [Concomitant]
  10. CYCLOBENZAPRINE [Concomitant]
     Dosage: 10 MG
  11. JANUVIA [Concomitant]
  12. FUROSEMIDE [Concomitant]

REACTIONS (4)
  - FALL [None]
  - MUSCULAR WEAKNESS [None]
  - PAIN IN EXTREMITY [None]
  - POLYMYOSITIS [None]
